FAERS Safety Report 9475828 (Version 3)
Quarter: 2014Q2

REPORT INFORMATION
  Report Type: Spontaneous
  Country: US (occurrence: US)
  Receive Date: 20130826
  Receipt Date: 20140617
  Transmission Date: 20141212
  Serious: No
  Sender: FDA-Public Use
  Company Number: US-PFIZER INC-2013244605

PATIENT
  Age: 64 Year
  Sex: Female
  Weight: 53.06 kg

DRUGS (9)
  1. LYRICA [Suspect]
     Indication: FIBROMYALGIA
     Dosage: 100 MG, 2X/DAY
     Route: 048
  2. LYRICA [Suspect]
     Dosage: 100 MG, 1X/DAY
     Route: 048
  3. LYRICA [Suspect]
     Dosage: 100 MG, 2X/DAY
     Dates: end: 201405
  4. ESTRADIOL [Concomitant]
     Dosage: 1 MG, UNK
  5. SYNTHROID [Concomitant]
     Dosage: 137 UG, 1X/DAY
  6. METOPROLOL [Concomitant]
     Indication: HYPERTENSION
     Dosage: 25 MG, UNK
  7. LISINOPRIL [Concomitant]
     Indication: HYPERTENSION
     Dosage: UNK
  8. PREMARIN [Concomitant]
     Dosage: UNK
  9. VALIUM [Concomitant]
     Indication: MUSCLE SPASMS
     Dosage: UNK

REACTIONS (14)
  - Anaemia [Unknown]
  - Muscle spasms [Unknown]
  - Drug effect incomplete [Unknown]
  - Somnolence [Unknown]
  - Weight decreased [Unknown]
  - Screaming [Unknown]
  - Drug ineffective [Unknown]
  - Fibromyalgia [Unknown]
  - Pain [Not Recovered/Not Resolved]
  - Pain in extremity [Not Recovered/Not Resolved]
  - Muscle spasms [Not Recovered/Not Resolved]
  - Burning sensation [Not Recovered/Not Resolved]
  - Malaise [Not Recovered/Not Resolved]
  - Discomfort [Not Recovered/Not Resolved]
